FAERS Safety Report 5819348-9 (Version None)
Quarter: 2008Q3

REPORT INFORMATION
  Report Type: 
  Country: None (occurrence: None)
  Receive Date: 20080723
  Receipt Date: 20080225
  Transmission Date: 20090109
  Serious: No
  Sender: FDA-Public Use
  Company Number: US-BAYER-200810914BCC

PATIENT
  Age: 68 Year
  Sex: Female
  Weight: 65 kg

DRUGS (4)
  1. ALEVE [Suspect]
     Indication: ARTHRITIS
     Dates: start: 20071201
  2. ASCORBIC ACID [Concomitant]
  3. VITAMIN E [Concomitant]
  4. OPTIUM CALCIUM [Concomitant]

REACTIONS (1)
  - STOMACH DISCOMFORT [None]
